FAERS Safety Report 7656418-7 (Version None)
Quarter: 2011Q3

REPORT INFORMATION
  Report Type: 
  Country: None (occurrence: None)
  Receive Date: 20110804
  Receipt Date: 20110727
  Transmission Date: 20111222
  Serious: Yes (Hospitalization)
  Sender: FDA-Public Use
  Company Number: JP-GLAXOSMITHKLINE-B0735883A

PATIENT
  Sex: Male

DRUGS (6)
  1. TAMSULOSIN HCL [Concomitant]
     Route: 048
     Dates: start: 20110616
  2. FUROSEMIDE [Concomitant]
     Route: 048
     Dates: start: 20110616
  3. ALDACTONE [Concomitant]
     Route: 048
     Dates: start: 20110616
  4. RABEPRAZOLE SODIUM [Concomitant]
     Route: 048
     Dates: start: 20110616
  5. DUTASTERIDE [Suspect]
     Indication: BENIGN PROSTATIC HYPERPLASIA
     Dosage: .5MG PER DAY
     Route: 048
     Dates: start: 20110720, end: 20110727
  6. DEPAS [Concomitant]
     Route: 048
     Dates: start: 20110616

REACTIONS (1)
  - CARDIAC FAILURE [None]
